FAERS Safety Report 11294333 (Version 1)
Quarter: 2015Q3

REPORT INFORMATION
  Report Type: Spontaneous
  Country: US (occurrence: US)
  Receive Date: 20150722
  Receipt Date: 20150722
  Transmission Date: 20151125
  Serious: No
  Sender: FDA-Public Use
  Company Number: US-ELI_LILLY_AND_COMPANY-US200805002325

PATIENT
  Sex: Female

DRUGS (1)
  1. EVISTA [Suspect]
     Active Substance: RALOXIFENE HYDROCHLORIDE
     Indication: OSTEOPENIA
     Dosage: 60 MG, UNK
     Dates: start: 2003

REACTIONS (4)
  - Hot flush [Not Recovered/Not Resolved]
  - Fear of disease [Recovered/Resolved]
  - Hypoaesthesia [Recovered/Resolved]
  - Breast calcifications [Unknown]

NARRATIVE: CASE EVENT DATE: 200804
